FAERS Safety Report 7736123-9 (Version None)
Quarter: 2011Q3

REPORT INFORMATION
  Report Type: 
  Country: None (occurrence: None)
  Receive Date: 20110908
  Receipt Date: 20110826
  Transmission Date: 20111222
  Serious: Yes (Hospitalization, Other)
  Sender: FDA-Public Use
  Company Number: JP-JNJFOC-20110900673

PATIENT
  Sex: Male

DRUGS (8)
  1. RIMEFA 3B [Concomitant]
     Indication: EPIDIDYMITIS
     Route: 041
     Dates: start: 20110702, end: 20110702
  2. LEVOFLOXACIN [Suspect]
     Indication: EPIDIDYMITIS
     Route: 048
     Dates: start: 20110702, end: 20110711
  3. VOLTAREN [Suspect]
     Indication: EPIDIDYMITIS
     Route: 065
  4. LACTEC [Concomitant]
     Indication: EPIDIDYMITIS
     Route: 041
     Dates: start: 20110702, end: 20110702
  5. DICLOFENAC SODIUM [Suspect]
     Indication: EPIDIDYMITIS
     Route: 048
     Dates: start: 20110702, end: 20110702
  6. BISOPROLOL FUMARATE [Concomitant]
     Indication: ATRIAL FIBRILLATION
     Route: 048
     Dates: start: 20071212
  7. PRADAXA [Concomitant]
     Indication: ATRIAL FIBRILLATION
     Route: 048
     Dates: start: 20110610
  8. DICLOFENAC SODIUM [Suspect]
     Route: 048
     Dates: start: 20110702, end: 20110711

REACTIONS (2)
  - GASTRIC ULCER [None]
  - RENAL FAILURE ACUTE [None]
